FAERS Safety Report 20185135 (Version 3)
Quarter: 2022Q1

REPORT INFORMATION
  Report Type: Other
  Country: IT (occurrence: IT)
  Receive Date: 20211215
  Receipt Date: 20220308
  Transmission Date: 20220424
  Serious: Yes (Death, Hospitalization)
  Sender: FDA-Public Use
  Company Number: IT-CELLTRION INC.-2021IT016561

PATIENT

DRUGS (1)
  1. RITUXIMAB [Suspect]
     Active Substance: RITUXIMAB
     Indication: Hodgkin^s disease
     Dosage: UNK
     Route: 065
     Dates: start: 202012

REACTIONS (5)
  - Acute respiratory distress syndrome [Fatal]
  - Condition aggravated [Fatal]
  - COVID-19 [Fatal]
  - Septic shock [Fatal]
  - Off label use [Unknown]
